FAERS Safety Report 25274881 (Version 1)
Quarter: 2025Q2

REPORT INFORMATION
  Report Type: Spontaneous
  Country: FR (occurrence: FR)
  Receive Date: 20250506
  Receipt Date: 20250506
  Transmission Date: 20250717
  Serious: Yes (Hospitalization)
  Sender: PFIZER
  Company Number: None

PATIENT
  Age: 88 Year
  Sex: Female
  Weight: 70 kg

DRUGS (2)
  1. PIPERACILLIN SODIUM\TAZOBACTAM SODIUM [Suspect]
     Active Substance: PIPERACILLIN SODIUM\TAZOBACTAM SODIUM
     Indication: Lung disorder
     Dosage: UNK, 3X/DAY
     Route: 042
     Dates: start: 20250408, end: 20250414
  2. MEROPENEM [Suspect]
     Active Substance: MEROPENEM
     Indication: Lung disorder
     Route: 042
     Dates: start: 20250414, end: 20250417

REACTIONS (2)
  - Thrombocytopenia [Not Recovered/Not Resolved]
  - Renal failure [Not Recovered/Not Resolved]

NARRATIVE: CASE EVENT DATE: 20250414
